FAERS Safety Report 5519991-0 (Version None)
Quarter: 2007Q4

REPORT INFORMATION
  Report Type: 
  Country: None (occurrence: None)
  Receive Date: 20071116
  Receipt Date: 20071113
  Transmission Date: 20080405
  Serious: Yes (Disabling, Other)
  Sender: FDA-Public Use
  Company Number: US-ASTRAZENECA-1999UW03264

PATIENT
  Age: 65 Year
  Sex: Male

DRUGS (1)
  1. CASODEX [Suspect]
     Indication: PROSTATE CANCER
     Route: 048
     Dates: start: 20000101

REACTIONS (11)
  - ADVERSE EVENT [None]
  - ASTHENIA [None]
  - BONE PAIN [None]
  - COUGH [None]
  - DIZZINESS [None]
  - HAEMATURIA [None]
  - HEADACHE [None]
  - HEPATIC ENZYME INCREASED [None]
  - HYPERSENSITIVITY [None]
  - NECK PAIN [None]
  - PYREXIA [None]
